FAERS Safety Report 25388495 (Version 1)
Quarter: 2025Q2

REPORT INFORMATION
  Report Type: Spontaneous
  Country: BR (occurrence: BR)
  Receive Date: 20250603
  Receipt Date: 20250603
  Transmission Date: 20250717
  Serious: Yes (Hospitalization, Disabling, Other)
  Sender: NOVO NORDISK
  Company Number: BR-NOVOPROD-1441159

PATIENT
  Age: 813 Month
  Sex: Female

DRUGS (1)
  1. SAXENDA [Suspect]
     Active Substance: LIRAGLUTIDE
     Indication: Diabetes mellitus

REACTIONS (4)
  - Cerebrovascular accident [Recovered/Resolved with Sequelae]
  - Loss of personal independence in daily activities [Not Recovered/Not Resolved]
  - Blood glucose increased [Unknown]
  - Product use in unapproved indication [Recovered/Resolved]
